FAERS Safety Report 10039498 (Version 1)
Quarter: 2014Q1

REPORT INFORMATION
  Report Type: Spontaneous
  Country: US (occurrence: None)
  Receive Date: 20140324
  Receipt Date: 20140324
  Transmission Date: 20141002
  Serious: Yes (Death, Hospitalization)
  Sender: FDA-Public Use
  Company Number: UTC-046011

PATIENT
  Age: 48 Year
  Sex: Female

DRUGS (2)
  1. REMODULIN ( 2.5 MILLIGRAM/MILLILITERS, INJECTION FOR INFUSION) ( TREPROSTINIL SODIUM) [Suspect]
     Indication: COR PULMONALE CHRONIC
     Dosage: 57.6 UG/KG (0.04 UG/KG, 1 IN 1 MIN), INTRAVENOUS DRIP
     Route: 041
     Dates: start: 20140210
  2. ADCIRCA (TADALAFIL) (UNKNOWN) [Concomitant]

REACTIONS (1)
  - Renal failure [None]
